FAERS Safety Report 15261211 (Version 1)
Quarter: 2018Q3

REPORT INFORMATION
  Report Type: Spontaneous
  Country: US (occurrence: US)
  Receive Date: 20180719
  Receipt Date: 20180719
  Transmission Date: 20181010
  Serious: Yes (Other)
  Sender: FDA-Public Use
  Company Number: None

PATIENT
  Age: 7 Year
  Sex: Female
  Weight: 23.85 kg

DRUGS (2)
  1. MIRALAX [Concomitant]
     Active Substance: POLYETHYLENE GLYCOL 3350
  2. QVAR REDIHALER [Suspect]
     Active Substance: BECLOMETHASONE DIPROPIONATE
     Indication: ASTHMA
     Dosage: ?          OTHER STRENGTH:80MCG;QUANTITY:2 PUFF(S);?
     Route: 055
     Dates: start: 20180714, end: 20180718

REACTIONS (4)
  - Aggression [None]
  - Frustration tolerance decreased [None]
  - Anger [None]
  - Irritability [None]

NARRATIVE: CASE EVENT DATE: 20180716
